FAERS Safety Report 14668861 (Version 2)
Quarter: 2018Q2

REPORT INFORMATION
  Report Type: Spontaneous
  Country: TR (occurrence: TR)
  Receive Date: 20180322
  Receipt Date: 20180402
  Transmission Date: 20180711
  Serious: Yes (Other)
  Sender: FDA-Public Use
  Company Number: TR-JNJFOC-20180322121

PATIENT
  Age: 27 Year
  Weight: 110 kg

DRUGS (3)
  1. RISPERDAL [Suspect]
     Active Substance: RISPERIDONE
     Indication: ABNORMAL BEHAVIOUR
     Route: 065
     Dates: start: 20180226, end: 20180310
  2. DEPAKIN [Concomitant]
     Active Substance: VALPROATE SODIUM
     Indication: ABNORMAL BEHAVIOUR
     Route: 065
     Dates: start: 20180226
  3. DEPAKIN [Concomitant]
     Active Substance: VALPROATE SODIUM
     Indication: ABNORMAL BEHAVIOUR
     Dosage: DOSE REDUCED
     Route: 065

REACTIONS (5)
  - Panic attack [Recovering/Resolving]
  - Depressed mood [Not Recovered/Not Resolved]
  - Treatment noncompliance [Unknown]
  - Suicidal ideation [Recovered/Resolved]
  - Apathy [Not Recovered/Not Resolved]

NARRATIVE: CASE EVENT DATE: 201802
